FAERS Safety Report 20612197 (Version 1)
Quarter: 2022Q1

REPORT INFORMATION
  Report Type: Spontaneous
  Country: US (occurrence: None)
  Receive Date: 20220318
  Receipt Date: 20220318
  Transmission Date: 20220424
  Serious: Yes (Hospitalization)
  Sender: FDA-Public Use
  Company Number: None

PATIENT
  Age: 66 Year
  Sex: Male

DRUGS (1)
  1. EVUSHELD [Suspect]
     Active Substance: CILGAVIMAB\TIXAGEVIMAB
     Indication: COVID-19

REACTIONS (5)
  - Cardiac arrest [None]
  - Metapneumovirus infection [None]
  - Flushing [None]
  - Cold sweat [None]
  - Oxygen saturation decreased [None]

NARRATIVE: CASE EVENT DATE: 20220108
